FAERS Safety Report 4382010-6 (Version None)
Quarter: 2004Q2

REPORT INFORMATION
  Report Type: 
  Country: None (occurrence: None)
  Receive Date: 20040615
  Receipt Date: 20040610
  Transmission Date: 20050107
  Serious: Yes (Life-Threatening)
  Sender: FDA-Public Use
  Company Number: HQWYE288331MAR04

PATIENT
  Age: 71 Year
  Sex: Female

DRUGS (11)
  1. TAZOCIN (PIPERACILLIN/TAZOBACTAM, INJECTION) [Suspect]
     Indication: ABDOMINAL ABSCESS
     Dosage: 5 G DAILY, INTRAVENOUS DRIP
     Route: 041
     Dates: start: 20030912, end: 20030927
  2. TAZOCIN (PIPERACILLIN/TAZOBACTAM, INJECTION) [Suspect]
     Indication: PNEUMONIA
     Dosage: 5 G DAILY, INTRAVENOUS DRIP
     Route: 041
     Dates: start: 20030912, end: 20030927
  3. TAZOCIN (PIPERACILLIN/TAZOBACTAM, INJECTION) [Suspect]
     Indication: SEPSIS
     Dosage: 5 G DAILY, INTRAVENOUS DRIP
     Route: 041
     Dates: start: 20030912, end: 20030927
  4. FOY (GABEXATE MESILATE) [Concomitant]
  5. MIRACLID (URINASTATIN) [Concomitant]
  6. INOVAN (DOPAMINE HYDROCHLORIDE) [Concomitant]
  7. PANTOL (PANTHENOL) [Concomitant]
  8. HICALIQ (CALCIUM GLUCONATE/GLUCOSE/MAGNESIUM SULFATE/POTASSIUM ACETATE [Concomitant]
  9. NEOLAMIN MULTI (VITAMINS NOS) [Concomitant]
  10. ZANTAC (RANITIDINE HYDROCHLORDIE) [Concomitant]
  11. CLINDAMYCIN HCL [Concomitant]

REACTIONS (9)
  - BLOOD ALKALINE PHOSPHATASE INCREASED [None]
  - BLOOD BILIRUBIN INCREASED [None]
  - CONDITION AGGRAVATED [None]
  - DRUG INEFFECTIVE [None]
  - GAMMA-GLUTAMYLTRANSFERASE INCREASED [None]
  - HEPATIC FUNCTION ABNORMAL [None]
  - MULTI-ORGAN FAILURE [None]
  - RENAL FAILURE [None]
  - RESPIRATORY FAILURE [None]
